FAERS Safety Report 20659903 (Version 1)
Quarter: 2022Q1

REPORT INFORMATION
  Report Type: Spontaneous
  Country: CA (occurrence: CA)
  Receive Date: 20220331
  Receipt Date: 20220331
  Transmission Date: 20220424
  Serious: Yes (Hospitalization, Other)
  Sender: FDA-Public Use
  Company Number: CA-TEVA-2022-CA-2021589

PATIENT
  Sex: Male

DRUGS (30)
  1. ARIPIPRAZOLE [Suspect]
     Active Substance: ARIPIPRAZOLE
     Indication: Schizophrenia
     Route: 065
  2. CITALOPRAM [Suspect]
     Active Substance: CITALOPRAM HYDROBROMIDE
     Indication: Schizophrenia
     Route: 065
  3. FLUOXETINE HYDROCHLORIDE [Suspect]
     Active Substance: FLUOXETINE HYDROCHLORIDE
     Indication: Schizophrenia
     Route: 065
  4. GABAPENTIN [Suspect]
     Active Substance: GABAPENTIN
     Indication: Schizophrenia
     Route: 065
  5. GABAPENTIN [Suspect]
     Active Substance: GABAPENTIN
     Route: 065
  6. HALOPERIDOL [Suspect]
     Active Substance: HALOPERIDOL
     Indication: Schizophrenia
     Route: 065
  7. HALOPERIDOL [Suspect]
     Active Substance: HALOPERIDOL
     Route: 065
  8. OLANZAPINE [Suspect]
     Active Substance: OLANZAPINE
     Indication: Schizophrenia
     Route: 065
  9. OLANZAPINE [Suspect]
     Active Substance: OLANZAPINE
     Route: 065
  10. OLANZAPINE [Suspect]
     Active Substance: OLANZAPINE
     Route: 065
  11. QUETIAPINE FUMARATE [Suspect]
     Active Substance: QUETIAPINE FUMARATE
     Indication: Schizophrenia
     Route: 005
  12. RISPERIDONE [Suspect]
     Active Substance: RISPERIDONE
     Indication: Schizophrenia
     Route: 065
  13. RISPERIDONE [Suspect]
     Active Substance: RISPERIDONE
     Route: 065
  14. AMISULPRIDE [Suspect]
     Active Substance: AMISULPRIDE
     Indication: Schizophrenia
     Route: 065
  15. CLOMIPRAMINE [Suspect]
     Active Substance: CLOMIPRAMINE
     Indication: Schizophrenia
     Route: 065
  16. CLOZAPINE [Suspect]
     Active Substance: CLOZAPINE
     Indication: Schizophrenia
     Route: 065
  17. FLUPENTIXOL [Suspect]
     Active Substance: FLUPENTIXOL
     Indication: Schizophrenia
     Route: 065
  18. LITHIUM CARBONATE [Suspect]
     Active Substance: LITHIUM CARBONATE
     Indication: Schizophrenia
     Route: 065
  19. LITHIUM CARBONATE [Suspect]
     Active Substance: LITHIUM CARBONATE
     Route: 065
  20. LITHIUM CARBONATE [Suspect]
     Active Substance: LITHIUM CARBONATE
     Route: 065
  21. LOXAPINE [Suspect]
     Active Substance: LOXAPINE
     Indication: Schizophrenia
     Route: 065
  22. LOXAPINE [Suspect]
     Active Substance: LOXAPINE
     Route: 065
  23. LOXAPINE [Suspect]
     Active Substance: LOXAPINE
     Route: 065
  24. PERPHENAZINE [Suspect]
     Active Substance: PERPHENAZINE
     Indication: Schizophrenia
     Route: 065
  25. PERPHENAZINE [Suspect]
     Active Substance: PERPHENAZINE
     Route: 065
  26. SAPHRIS [Suspect]
     Active Substance: ASENAPINE MALEATE
     Indication: Schizophrenia
     Route: 065
  27. THIORIDAZINE [Suspect]
     Active Substance: THIORIDAZINE
     Indication: Schizophrenia
     Route: 048
  28. TRIFLUOPERAZINE [Suspect]
     Active Substance: TRIFLUOPERAZINE HYDROCHLORIDE
     Indication: Schizophrenia
     Route: 048
  29. ZIPRASIDONE HYDROCHLORIDE [Suspect]
     Active Substance: ZIPRASIDONE HYDROCHLORIDE
     Indication: Schizophrenia
     Route: 065
  30. VALPROATE SODIUM [Concomitant]
     Active Substance: VALPROATE SODIUM
     Indication: Product used for unknown indication

REACTIONS (14)
  - Akathisia [Unknown]
  - Antipsychotic drug level below therapeutic [Unknown]
  - Disinhibition [Unknown]
  - Drug ineffective [Unknown]
  - Euphoric mood [Unknown]
  - Increased appetite [Unknown]
  - Leukaemia [Unknown]
  - Leukopenia [Unknown]
  - Obsessive-compulsive disorder [Unknown]
  - Suicide attempt [Unknown]
  - Therapeutic product effect incomplete [Unknown]
  - Therapeutic product effect variable [Unknown]
  - Toxicity to various agents [Unknown]
  - Weight increased [Unknown]
